FAERS Safety Report 8231110-9 (Version None)
Quarter: 2012Q1

REPORT INFORMATION
  Report Type: 
  Country: None (occurrence: None)
  Receive Date: 20120322
  Receipt Date: 20120322
  Transmission Date: 20120608
  Serious: Yes (Hospitalization, Other)
  Sender: FDA-Public Use
  Company Number: None

PATIENT
  Age: 42 Year
  Sex: Male
  Weight: 80 kg

DRUGS (1)
  1. NARDIL [Suspect]
     Indication: BIPOLAR II DISORDER
     Dosage: 45MG
     Route: 048
     Dates: start: 19910904, end: 20111205

REACTIONS (6)
  - DRUG INEFFECTIVE [None]
  - DRUG WITHDRAWAL SYNDROME [None]
  - INFLUENZA [None]
  - DEPRESSION [None]
  - PRODUCT FORMULATION ISSUE [None]
  - DISEASE RECURRENCE [None]
